FAERS Safety Report 10560452 (Version 2)
Quarter: 2014Q4

REPORT INFORMATION
  Report Type: Spontaneous
  Country: US (occurrence: US)
  Receive Date: 20141103
  Receipt Date: 20141103
  Transmission Date: 20150529
  Serious: No
  Sender: FDA-Public Use
  Company Number: US-SA-POMP-1001155

PATIENT
  Age: 15 Year
  Sex: Male
  Weight: 40.9 kg

DRUGS (13)
  1. LUMIZYME [Suspect]
     Active Substance: ALGLUCOSIDASE ALFA
     Indication: GLYCOGEN STORAGE DISEASE TYPE II
     Dosage: 19.6 MG/KG, Q2W
     Route: 042
     Dates: start: 20100908
  2. MESALAZINE [Concomitant]
     Active Substance: MESALAMINE
     Dosage: UNK UNK, UNK
     Route: 065
  3. DIURIL [Concomitant]
     Active Substance: CHLOROTHIAZIDE
     Dosage: UNK UNK, UNK
     Route: 065
  4. AMITRIPTYLINE [Concomitant]
     Active Substance: AMITRIPTYLINE
     Dosage: UNK UNK, UNK
     Route: 065
  5. CHLORAL HYDRATE [Concomitant]
     Active Substance: CHLORAL HYDRATE
     Dosage: UNK UNK, UNK
     Route: 065
  6. MIRALAX [Concomitant]
     Active Substance: POLYETHYLENE GLYCOL 3350
     Dosage: UNK UNK, UNK
     Route: 065
  7. CALCIUM [Concomitant]
     Active Substance: CALCIUM
     Dosage: UNK UNK, UNK
     Route: 065
  8. ALBUTEROL. [Concomitant]
     Active Substance: ALBUTEROL
     Indication: ASTHMA
     Dosage: UNK UNK, UNK
     Route: 055
  9. POLYCITRA-K ^WILLEN^ [Concomitant]
     Dosage: UNK UNK, UNK
     Route: 065
  10. MYOZYME [Suspect]
     Active Substance: ALGLUCOSIDASE ALFA
     Indication: GLYCOGEN STORAGE DISEASE TYPE II
     Dosage: 800 MG, Q2W
     Route: 042
     Dates: start: 20040916, end: 201008
  11. AREDIA [Concomitant]
     Active Substance: PAMIDRONATE DISODIUM
     Indication: BONE DENSITY DECREASED
     Dosage: UNK UNK, UNK
     Route: 042
  12. NEXIUM [Concomitant]
     Active Substance: ESOMEPRAZOLE MAGNESIUM
     Dosage: UNK UNK, UNK
     Route: 065
  13. LYRICA [Concomitant]
     Active Substance: PREGABALIN
     Dosage: UNK UNK, UNK
     Route: 065

REACTIONS (4)
  - Lacrimation increased [Unknown]
  - Rhinorrhoea [Unknown]
  - Nausea [Unknown]
  - Influenza like illness [Recovered/Resolved]

NARRATIVE: CASE EVENT DATE: 20101007
